FAERS Safety Report 7425456-1 (Version None)
Quarter: 2011Q2

REPORT INFORMATION
  Report Type: 
  Country: None (occurrence: None)
  Receive Date: 20110420
  Receipt Date: 20110411
  Transmission Date: 20111010
  Serious: Yes (Life-Threatening, Hospitalization)
  Sender: FDA-Public Use
  Company Number: GB-SANOFI-AVENTIS-2011SA022115

PATIENT
  Age: 6 Year
  Sex: Male
  Weight: 19.7 kg

DRUGS (5)
  1. CEFOTAXIME SODIUM [Suspect]
     Indication: ENDOCARDITIS
     Route: 042
     Dates: start: 20110216, end: 20110314
  2. SYTRON [Concomitant]
     Route: 048
  3. GENTAMICIN [Concomitant]
     Route: 042
     Dates: start: 20110216, end: 20110228
  4. MOVIPREP [Concomitant]
     Route: 048
  5. CIPROFLOXACIN [Concomitant]
     Route: 042
     Dates: start: 20110216

REACTIONS (1)
  - BONE MARROW FAILURE [None]
